FAERS Safety Report 5800865-2 (Version None)
Quarter: 2008Q3

REPORT INFORMATION
  Report Type: 
  Country: None (occurrence: None)
  Receive Date: 20080703
  Receipt Date: 20080627
  Transmission Date: 20090109
  Serious: Yes (Other)
  Sender: FDA-Public Use
  Company Number: TW-AMGEN-US290553

PATIENT
  Sex: Female

DRUGS (15)
  1. ARANESP [Suspect]
     Indication: DIALYSIS
     Route: 065
     Dates: start: 20061101
  2. EPOETIN BETA [Suspect]
     Route: 058
     Dates: start: 20031001, end: 20080101
  3. FOLIC ACID [Concomitant]
  4. VITAMIN B COMPLEX CAP [Concomitant]
  5. IRON [Concomitant]
  6. ASCORBIC ACID [Concomitant]
  7. ASPIRIN [Concomitant]
  8. ACARBOSE [Concomitant]
  9. CARVEDILOL [Concomitant]
  10. GLIMEPIRIDE [Concomitant]
  11. FENOFIBRATE [Concomitant]
  12. NORVASC [Concomitant]
  13. LASIX [Concomitant]
  14. MECOBALAMIN [Concomitant]
  15. ROSUVASTATIN CALCIUM [Concomitant]

REACTIONS (3)
  - ANAEMIA [None]
  - GASTROOESOPHAGEAL REFLUX DISEASE [None]
  - SERUM FERRITIN INCREASED [None]
